FAERS Safety Report 23173059 (Version 1)
Quarter: 2023Q4

REPORT INFORMATION
  Report Type: Spontaneous
  Country: US (occurrence: US)
  Receive Date: 20231110
  Receipt Date: 20231110
  Transmission Date: 20240109
  Serious: No
  Sender: FDA-Public Use
  Company Number: US-ABBVIE-5482420

PATIENT
  Age: 30 Year
  Sex: Female
  Weight: 104 kg

DRUGS (5)
  1. LO LOESTRIN FE [Suspect]
     Active Substance: ETHINYL ESTRADIOL\NORETHINDRONE ACETATE
     Indication: Polycystic ovarian syndrome
     Dosage: 1 MG  - 10 MCG
     Route: 048
     Dates: start: 202307, end: 20231031
  2. LO LOESTRIN FE [Suspect]
     Active Substance: ETHINYL ESTRADIOL\NORETHINDRONE ACETATE
     Indication: Polycystic ovarian syndrome
     Dosage: 1 MG  - 10 MCG
     Route: 048
     Dates: start: 2018, end: 2019
  3. LO LOESTRIN FE [Suspect]
     Active Substance: ETHINYL ESTRADIOL\NORETHINDRONE ACETATE
     Indication: Polycystic ovarian syndrome
     Dosage: 1 MG  - 10 MCG
     Route: 048
     Dates: start: 2010, end: 2016
  4. LO LOESTRIN FE [Suspect]
     Active Substance: ETHINYL ESTRADIOL\NORETHINDRONE ACETATE
     Indication: Polycystic ovarian syndrome
     Dosage: 1 MG  - 10 MCG
     Route: 048
     Dates: start: 20231101
  5. OMEPRAZOLE [Concomitant]
     Active Substance: OMEPRAZOLE
     Indication: Product used for unknown indication
     Dosage: 20 MG

REACTIONS (3)
  - Off label use [Not Recovered/Not Resolved]
  - Vaginal haemorrhage [Recovering/Resolving]
  - Therapeutic product effect incomplete [Unknown]

NARRATIVE: CASE EVENT DATE: 20231016
